FAERS Safety Report 4558680-6 (Version None)
Quarter: 2005Q1

REPORT INFORMATION
  Report Type: 
  Country: None (occurrence: None)
  Receive Date: 20050121
  Receipt Date: 20050121
  Transmission Date: 20050727
  Serious: Yes (Hospitalization)
  Sender: FDA-Public Use
  Company Number: None

PATIENT
  Sex: Female
  Weight: 84.8226 kg

DRUGS (18)
  1. METHOTREXATE [Suspect]
     Indication: RHEUMATOID ARTHRITIS
     Dosage: 0.8 ML (20 MG ) SQ Q WEEK (STILL ON)
     Route: 058
  2. BACTRIM DS [Suspect]
     Indication: KLEBSIELLA INFECTION
     Dosage: 1 PO Q 12 H X 14 D
     Route: 048
     Dates: start: 20041028, end: 20041212
  3. BACTRIM DS [Suspect]
     Indication: URINARY TRACT INFECTION
     Dosage: 1 PO Q 12 H X 14 D
     Route: 048
     Dates: start: 20041028, end: 20041212
  4. SKELAXIN [Concomitant]
  5. PREDNISONE [Concomitant]
  6. VITAMIN E [Concomitant]
  7. PRILOSEC [Concomitant]
  8. SYNTHROID [Concomitant]
  9. ACTONEL [Concomitant]
  10. ARICEPT [Concomitant]
  11. HUMALOG [Concomitant]
  12. LANTUS [Concomitant]
  13. FOLIC ACID [Concomitant]
  14. LIPITOR [Concomitant]
  15. ZESTRIL [Concomitant]
  16. LOPRESSOR [Concomitant]
  17. FE SO4 [Concomitant]
  18. ES ASA [Concomitant]

REACTIONS (3)
  - DRUG TOXICITY [None]
  - PANCYTOPENIA [None]
  - PYREXIA [None]
